FAERS Safety Report 4495440-9 (Version None)
Quarter: 2004Q4

REPORT INFORMATION
  Report Type: 
  Country: None (occurrence: None)
  Receive Date: 20041108
  Receipt Date: 20030203
  Transmission Date: 20050328
  Serious: Yes (Death, Hospitalization, Other)
  Sender: FDA-Public Use
  Company Number: US-AMGEN-KDL029245

PATIENT
  Sex: Male
  Weight: 91.7 kg

DRUGS (4)
  1. EPOGEN [Suspect]
     Indication: ANAEMIA OF MALIGNANT DISEASE
     Route: 058
     Dates: start: 20020227, end: 20030120
  2. FLUDARABINE PHOSPHATE [Suspect]
     Route: 042
     Dates: start: 20021209, end: 20021213
  3. RITUXAN [Concomitant]
     Dates: start: 20021209
  4. PREDNISONE [Concomitant]
     Route: 048
     Dates: start: 20030101

REACTIONS (4)
  - APLASIA PURE RED CELL [None]
  - DEATH [None]
  - PEMPHIGOID [None]
  - THERAPEUTIC RESPONSE DECREASED [None]
